FAERS Safety Report 6659898-9 (Version None)
Quarter: 2010Q1

REPORT INFORMATION
  Report Type: 
  Country: None (occurrence: None)
  Receive Date: 20100330
  Receipt Date: 20100330
  Transmission Date: 20100710
  Serious: Yes (Disabling)
  Sender: FDA-Public Use
  Company Number: None

PATIENT
  Age: 61 Year
  Sex: Male
  Weight: 81.7 kg

DRUGS (1)
  1. AMIODARONE HCL [Suspect]
     Indication: ATRIAL FIBRILLATION

REACTIONS (6)
  - ATRIAL FIBRILLATION [None]
  - GOITRE [None]
  - HYPERTHYROIDISM [None]
  - NIGHT SWEATS [None]
  - PYREXIA [None]
  - TREMOR [None]
